FAERS Safety Report 9641773 (Version 3)
Quarter: 2014Q2

REPORT INFORMATION
  Report Type: Spontaneous
  Country: GB (occurrence: None)
  Receive Date: 20131021
  Receipt Date: 20140402
  Transmission Date: 20141212
  Serious: Yes (Hospitalization)
  Sender: FDA-Public Use
  Company Number: 1950866

PATIENT
  Age: 30 Year
  Sex: Female

DRUGS (9)
  1. METOCLOPRAMIDE [Concomitant]
  2. GLYCEROL [Concomitant]
  3. HYPROMELLOSE [Concomitant]
  4. DOCETAXEL [Suspect]
     Indication: HER-2 POSITIVE BREAST CANCER
     Dosage: NOT OTHERWISE SPECIFIED
     Route: 042
     Dates: start: 20130605
  5. DOCETAXEL [Suspect]
     Indication: BREAST CANCER
     Dosage: NOT OTHERWISE SPECIFIED
     Route: 042
     Dates: start: 20130605
  6. PERTUZUMAB [Concomitant]
  7. TRASTUZUMAB [Concomitant]
  8. DEXAMETHASONE [Concomitant]
  9. ONDANSETRON [Concomitant]

REACTIONS (2)
  - Neutropenic sepsis [None]
  - Haemoglobin decreased [None]
